FAERS Safety Report 11190149 (Version 3)
Quarter: 2015Q3

REPORT INFORMATION
  Report Type: Report from Study
  Country: BR (occurrence: BR)
  Receive Date: 20150615
  Receipt Date: 20150917
  Transmission Date: 20151125
  Serious: Yes (Disabling, Other)
  Sender: FDA-Public Use
  Company Number: BR-ABBVIE-15K-020-1405376-00

PATIENT
  Age: 46 Year
  Sex: Female
  Weight: 69 kg

DRUGS (4)
  1. HUMIRA [Suspect]
     Active Substance: ADALIMUMAB
     Indication: ANKYLOSING SPONDYLITIS
     Route: 058
     Dates: start: 20140523, end: 201505
  2. LEVONORGESTREL. [Concomitant]
     Active Substance: LEVONORGESTREL
     Indication: CONTRACEPTION
     Dosage: INTRA UTERINE DEVICE
  3. ADVIL [Concomitant]
     Active Substance: IBUPROFEN
     Indication: PAIN
     Dosage: 1 TABLET
     Route: 048
  4. NEOSALDINA [Concomitant]
     Active Substance: CAFFEINE\ISOMETHEPTENE\METHIMAZOLE
     Indication: PAIN
     Dosage: 1 TABLET
     Route: 048

REACTIONS (6)
  - Joint ankylosis [Not Recovered/Not Resolved]
  - Bacterial infection [Unknown]
  - Pain in extremity [Not Recovered/Not Resolved]
  - Viral infection [Unknown]
  - Facial pain [Not Recovered/Not Resolved]
  - VIIth nerve paralysis [Recovered/Resolved]

NARRATIVE: CASE EVENT DATE: 20150517
